FAERS Safety Report 23047850 (Version 1)
Quarter: 2023Q4

REPORT INFORMATION
  Report Type: Spontaneous
  Country: IN (occurrence: IN)
  Receive Date: 20231010
  Receipt Date: 20231010
  Transmission Date: 20240110
  Serious: Yes (Other)
  Sender: FDA-Public Use
  Company Number: IN-SKF-000054

PATIENT
  Age: 55 Year
  Sex: Female

DRUGS (6)
  1. ACETAMINOPHEN [Suspect]
     Active Substance: ACETAMINOPHEN
     Indication: Product used for unknown indication
     Route: 065
  2. ACECLOFENAC\PREGABALIN [Suspect]
     Active Substance: ACECLOFENAC\PREGABALIN
     Indication: Product used for unknown indication
     Route: 065
  3. ACECLOFENAC [Suspect]
     Active Substance: ACECLOFENAC
     Indication: Product used for unknown indication
     Route: 065
  4. PREGABALIN [Suspect]
     Active Substance: PREGABALIN
     Indication: Product used for unknown indication
     Route: 065
  5. PREGABALIN [Suspect]
     Active Substance: PREGABALIN
     Indication: Product used for unknown indication
     Route: 065
  6. PREGABALIN [Suspect]
     Active Substance: PREGABALIN
     Indication: Product used for unknown indication
     Route: 065

REACTIONS (13)
  - Drug dependence [Unknown]
  - Irritability [Recovered/Resolved]
  - Withdrawal syndrome [Unknown]
  - Sleep disorder [Unknown]
  - Depressed mood [Unknown]
  - Decreased interest [Unknown]
  - Dizziness [Unknown]
  - Headache [Unknown]
  - Restlessness [Unknown]
  - Incorrect product administration duration [Unknown]
  - Intentional product misuse [Unknown]
  - Facial paralysis [Unknown]
  - Back pain [Unknown]
